FAERS Safety Report 16702092 (Version 5)
Quarter: 2020Q2

REPORT INFORMATION
  Report Type: Spontaneous
  Country: US (occurrence: US)
  Receive Date: 20190814
  Receipt Date: 20200511
  Transmission Date: 20200713
  Serious: No
  Sender: FDA-Public Use
  Company Number: US-PFIZER INC-2019110633

PATIENT
  Age: 56 Year
  Sex: Male
  Weight: 110.2 kg

DRUGS (4)
  1. ZYVOX [Suspect]
     Active Substance: LINEZOLID
     Indication: OSTEOMYELITIS
  2. BACTRIM [Suspect]
     Active Substance: SULFAMETHOXAZOLE\TRIMETHOPRIM
     Indication: OSTEOMYELITIS
     Dosage: UNK
     Dates: start: 20190701
  3. SULFAMETHOXAZOLE AND TRIMETHOPRIM [Suspect]
     Active Substance: SULFAMETHOXAZOLE\TRIMETHOPRIM
     Indication: OSTEOMYELITIS
     Dosage: UNK, 2X/DAY(DOSE: 800/160MG TABLETS,1 TABLET, TWICE A DAY)
     Dates: start: 2012
  4. ZYVOX [Suspect]
     Active Substance: LINEZOLID
     Indication: OSTEOMYELITIS CHRONIC
     Dosage: 600 MG, 2X/DAY (TWICE PER DAY FOR ONE MONTH WITH ONE MONTH OFF); EVERY 12 HOURS AS NEEDED
     Route: 048

REACTIONS (4)
  - Product dose omission [Unknown]
  - Drug ineffective for unapproved indication [Unknown]
  - Off label use [Unknown]
  - Peripheral swelling [Unknown]
